FAERS Safety Report 5007049-9 (Version None)
Quarter: 2006Q2

REPORT INFORMATION
  Report Type: 
  Country: None (occurrence: None)
  Receive Date: 20060517
  Receipt Date: 20060505
  Transmission Date: 20061013
  Serious: Yes (Hospitalization)
  Sender: FDA-Public Use
  Company Number: GXKR2006AU02525

PATIENT
  Age: 59 Year
  Sex: Female

DRUGS (3)
  1. DILTIAZEM [Suspect]
     Dosage: 24 X 240 MG, ORAL
     Route: 048
  2. ZOLPIDEM (NGX)(ZOLPIDEM) TABLET [Suspect]
     Dosage: 12 X 10 MG, ORAL
     Route: 048
  3. LORAZEPAM [Suspect]
     Dosage: 4 X 1 MG, ORAL
     Route: 048

REACTIONS (3)
  - HYPOTENSION [None]
  - MULTIPLE DRUG OVERDOSE [None]
  - SINUS BRADYCARDIA [None]
